APPROVED DRUG PRODUCT: ERGAMISOL
Active Ingredient: LEVAMISOLE HYDROCHLORIDE
Strength: EQ 50MG BASE
Dosage Form/Route: TABLET;ORAL
Application: N020035 | Product #001
Applicant: JANSSEN PHARMACEUTICA PRODUCTS LP
Approved: Jun 18, 1990 | RLD: No | RS: No | Type: DISCN